FAERS Safety Report 8590514-5 (Version None)
Quarter: 2012Q3

REPORT INFORMATION
  Report Type: 
  Country: None (occurrence: None)
  Receive Date: 20120813
  Receipt Date: 20120731
  Transmission Date: 20120928
  Serious: Yes (Hospitalization)
  Sender: FDA-Public Use
  Company Number: US-COVIDIEN/TYCO HEALTHCARE/MALLINCKRODT-T201202992

PATIENT
  Age: 19 Year
  Sex: Male

DRUGS (1)
  1. METHADOSE [Suspect]
     Indication: ABDOMINAL PAIN
     Dosage: 100 MG, UNK

REACTIONS (3)
  - OVERDOSE [None]
  - LEUKOENCEPHALOPATHY [None]
  - DRUG DIVERSION [None]
